FAERS Safety Report 5680868-1 (Version None)
Quarter: 2008Q1

REPORT INFORMATION
  Report Type: 
  Country: None (occurrence: None)
  Receive Date: 20080325
  Receipt Date: 20080320
  Transmission Date: 20080703
  Serious: Yes (Other)
  Sender: FDA-Public Use
  Company Number: 017546

PATIENT
  Age: 17 Year
  Sex: Female

DRUGS (2)
  1. CLARAVIS [Suspect]
     Dosage: 40 MG, QD, ORAL
     Route: 048
     Dates: start: 20070410, end: 20070701
  2. MUPIROCIN MOISTURIZER (MUPIROCIN) [Concomitant]

REACTIONS (6)
  - DRUG EXPOSURE DURING PREGNANCY [None]
  - EPISTAXIS [None]
  - LIP DRY [None]
  - NASAL DRYNESS [None]
  - PREGNANCY [None]
  - UNINTENDED PREGNANCY [None]
